FAERS Safety Report 6370744-3 (Version None)
Quarter: 2009Q3

REPORT INFORMATION
  Report Type: 
  Country: None (occurrence: None)
  Receive Date: 20090923
  Receipt Date: 20070806
  Transmission Date: 20100115
  Serious: No
  Sender: FDA-Public Use
  Company Number: US-ASTRAZENECA-2006UW25308

PATIENT
  Age: 12491 Day
  Sex: Female
  Weight: 146.5 kg

DRUGS (21)
  1. SEROQUEL [Suspect]
     Indication: MENTAL DISABILITY
     Route: 048
     Dates: start: 19970101
  2. SEROQUEL [Suspect]
     Dosage: DOSE-  50MG-800MG DAILY
     Route: 048
     Dates: start: 20020529
  3. RISPERDAL [Concomitant]
     Route: 048
  4. THORAZINE [Concomitant]
  5. EFFEXOR XR [Concomitant]
  6. KLONOPIN [Concomitant]
  7. TRILAFON [Concomitant]
     Dosage: STRENGTH-  2MG, 4MG  DOSE-  2MG-16MG DAILY
  8. TRILEPTAL [Concomitant]
  9. LASIX [Concomitant]
     Dates: start: 20051105
  10. LISINOPRIL [Concomitant]
     Indication: BLOOD PRESSURE
     Dosage: STRENGTH-  20MG, 120MG, 200MG  DOSE- 20MG-200MG DAILY
  11. STELAZINE [Concomitant]
  12. BENADRYL [Concomitant]
  13. PREVACID [Concomitant]
  14. DYAZIDE [Concomitant]
     Dosage: ONE TABLET IN MORNING
  15. XANAX [Concomitant]
  16. LORAZEPAM [Concomitant]
     Indication: ANXIETY
     Route: 048
  17. COGENTIN [Concomitant]
     Indication: EXTRAPYRAMIDAL DISORDER
     Route: 048
  18. ZANTAC [Concomitant]
  19. PROZAC [Concomitant]
  20. NEXIUM [Concomitant]
     Indication: GASTROOESOPHAGEAL REFLUX DISEASE
     Dosage: STRENGTH-  20MG, 40 MG  DOSE- 20MG-40MG DAILY
     Route: 048
  21. PRILOSEC [Concomitant]
     Route: 048

REACTIONS (3)
  - DIABETES MELLITUS [None]
  - OBESITY [None]
  - TYPE 1 DIABETES MELLITUS [None]
